FAERS Safety Report 5691049-X (Version None)
Quarter: 2008Q2

REPORT INFORMATION
  Report Type: 
  Country: None (occurrence: None)
  Receive Date: 20080401
  Receipt Date: 20070502
  Transmission Date: 20081010
  Serious: Yes (Death, Life-Threatening, Hospitalization, Other)
  Sender: FDA-Public Use
  Company Number: US-BAYER-US-SHR-04-024288

PATIENT
  Age: 57 Year
  Sex: Female
  Weight: 88 kg

DRUGS (12)
  1. REFLUDAN [Suspect]
     Indication: HEPARIN-INDUCED THROMBOCYTOPENIA
     Route: 042
     Dates: start: 20040416, end: 20040416
  2. REFLUDAN [Suspect]
     Route: 042
     Dates: start: 20040301, end: 20040301
  3. FUROSEMIDE [Concomitant]
  4. METOLAZONE [Concomitant]
  5. SPIRONOLACTONE [Concomitant]
  6. CARVEDILOL [Concomitant]
  7. SIMVASTATIN [Concomitant]
  8. ASPIRIN [Concomitant]
  9. PANTOPRAZOLE SODIUM [Concomitant]
  10. ESCITALOPRAM OXALATE [Concomitant]
  11. MAGNESIUM OXIDE [Concomitant]
  12. WARFARIN SODIUM [Concomitant]

REACTIONS (10)
  - ANAPHYLACTIC REACTION [None]
  - CARDIAC FAILURE [None]
  - CARDIO-RESPIRATORY ARREST [None]
  - HAEMORRHAGE [None]
  - HYPOTENSION [None]
  - LOSS OF CONSCIOUSNESS [None]
  - PHARYNGEAL OEDEMA [None]
  - PULSE ABSENT [None]
  - VENTRICULAR FIBRILLATION [None]
  - VENTRICULAR TACHYCARDIA [None]
